FAERS Safety Report 5819644-5 (Version None)
Quarter: 2008Q3

REPORT INFORMATION
  Report Type: 
  Country: None (occurrence: None)
  Receive Date: 20080723
  Receipt Date: 20080718
  Transmission Date: 20090109
  Serious: Yes (Hospitalization)
  Sender: FDA-Public Use
  Company Number: US-BOEHRINGER INGELHEIM GMBH, GERMANY-2008-BP-11309BP

PATIENT
  Age: 81 Year
  Sex: Female

DRUGS (13)
  1. MIRAPEX [Suspect]
     Indication: PARKINSON'S DISEASE
     Route: 048
     Dates: start: 20060802, end: 20071118
  2. CARBIDOPA [Concomitant]
     Indication: PARKINSON'S DISEASE
     Dates: start: 20071114
  3. LEVODOPA [Concomitant]
     Indication: PARKINSON'S DISEASE
     Dates: start: 20070908
  4. TRAZODONE HCL [Concomitant]
     Indication: INSOMNIA
     Dates: start: 20040101
  5. METOPROLOL TARTRATE [Concomitant]
     Indication: HYPERTENSION
     Dates: start: 20020101
  6. LISINOPRIL [Concomitant]
     Indication: HYPERTENSION
     Dates: start: 20020101
  7. CELECOXIB [Concomitant]
     Indication: ARTHRITIS
     Dates: start: 20040101
  8. DOCUSATE SODIUM [Concomitant]
     Indication: CONSTIPATION
     Dates: start: 20030101
  9. ACETAMINOPHEN [Concomitant]
     Indication: ARTHRALGIA
     Dates: start: 20040101
  10. TUMS E-X [Concomitant]
     Indication: MINERAL SUPPLEMENTATION
     Dates: start: 20050725
  11. ALENDRONATE SODIUM [Concomitant]
     Indication: ROUTINE HEALTH MAINTENANCE
     Dates: start: 20050725
  12. ZELAPAR [Concomitant]
     Indication: PARKINSON'S DISEASE
     Dates: start: 20070710
  13. ARTIFICIAL TEARS [Concomitant]
     Indication: KERATOCONJUNCTIVITIS SICCA
     Dates: start: 20070620

REACTIONS (2)
  - BRONCHITIS [None]
  - CONFUSIONAL STATE [None]
